FAERS Safety Report 8056670-2 (Version None)
Quarter: 2012Q1

REPORT INFORMATION
  Report Type: 
  Country: None (occurrence: None)
  Receive Date: 20120119
  Receipt Date: 20110311
  Transmission Date: 20120608
  Serious: No
  Sender: FDA-Public Use
  Company Number: US-SANOFI-AVENTIS-2011SA016706

PATIENT
  Age: 83 Year
  Sex: Female

DRUGS (1)
  1. LASIX [Suspect]
     Indication: SWELLING
     Route: 065
     Dates: start: 20110101

REACTIONS (4)
  - SWELLING [None]
  - DYSPNOEA [None]
  - GAIT DISTURBANCE [None]
  - DYSURIA [None]
